FAERS Safety Report 14757488 (Version 1)
Quarter: 2018Q2

REPORT INFORMATION
  Report Type: Spontaneous
  Country: JP (occurrence: JP)
  Receive Date: 20180413
  Receipt Date: 20180413
  Transmission Date: 20180711
  Serious: Yes (Other)
  Sender: FDA-Public Use
  Company Number: JP-009507513-1803JPN002111J

PATIENT
  Age: 60 Year
  Sex: Male
  Weight: 75 kg

DRUGS (2)
  1. SOVALDI [Suspect]
     Active Substance: SOFOSBUVIR
     Dosage: 400 MG, QD
     Route: 048
  2. REBETOL [Suspect]
     Active Substance: RIBAVIRIN
     Route: 048

REACTIONS (2)
  - Hyperuricaemia [Recovering/Resolving]
  - Renal impairment [Recovering/Resolving]
